FAERS Safety Report 7453880 (Version 4)
Quarter: 2013Q4

REPORT INFORMATION
  Report Type: Spontaneous
  Country: US (occurrence: US)
  Receive Date: 20100706
  Receipt Date: 20131105
  Transmission Date: 20140711
  Serious: Yes (Life-Threatening, Hospitalization)
  Sender: FDA-Public Use
  Company Number: US-BAYER-201026905NA

PATIENT
  Age: 38 Year
  Sex: Female
  Weight: 63.49 kg

DRUGS (2)
  1. YASMIN [Suspect]
     Dosage: UNK UNK, UNK
     Route: 048
     Dates: start: 2003, end: 2009
  2. OCELLA [Suspect]
     Dosage: UNK
     Dates: start: 2003, end: 2009

REACTIONS (3)
  - Cholecystitis chronic [None]
  - Cholelithiasis [None]
  - Gallbladder disorder [None]
